FAERS Safety Report 18808214 (Version 1)
Quarter: 2021Q1

REPORT INFORMATION
  Report Type: Spontaneous
  Country: US (occurrence: US)
  Receive Date: 20210129
  Receipt Date: 20210129
  Transmission Date: 20210419
  Serious: Yes (Hospitalization)
  Sender: FDA-Public Use
  Company Number: None

PATIENT
  Age: 15 Year
  Sex: Female
  Weight: 46.35 kg

DRUGS (1)
  1. EPIDUO FORTE [Suspect]
     Active Substance: ADAPALENE\BENZOYL PEROXIDE
     Indication: ACNE
     Route: 061
     Dates: start: 20201210, end: 20210122

REACTIONS (1)
  - Intracranial pressure increased [None]

NARRATIVE: CASE EVENT DATE: 20210123
